FAERS Safety Report 6242084-4 (Version None)
Quarter: 2009Q2

REPORT INFORMATION
  Report Type: 
  Country: None (occurrence: None)
  Receive Date: 20090622
  Receipt Date: 20090611
  Transmission Date: 20091009
  Serious: Yes (Hospitalization)
  Sender: FDA-Public Use
  Company Number: 297777

PATIENT
  Age: 31 Year
  Sex: Female

DRUGS (7)
  1. (EPHEDRINE) [Suspect]
     Indication: HYPOTENSION
     Dosage: 5 MG, INTRAVENOUS
     Route: 042
  2. (EPHEDRINE) [Suspect]
     Indication: SPINAL ANAESTHESIA
     Dosage: 5 MG, INTRAVENOUS
     Route: 042
  3. METARAMINOL BITARTRATE [Suspect]
     Indication: HYPOTENSION
     Dosage: 1 MG, INTRAVENOUS
     Route: 042
  4. METARAMINOL BITARTRATE [Suspect]
     Indication: SPINAL ANAESTHESIA
     Dosage: 1 MG, INTRAVENOUS
     Route: 042
  5. (HARTMANN'S SOLUTION) [Concomitant]
  6. MIDAZOLAM HCL [Concomitant]
  7. BUPIVACAINE [Concomitant]

REACTIONS (6)
  - ANXIETY [None]
  - ARTERIOSPASM CORONARY [None]
  - BLOOD PRESSURE INCREASED [None]
  - MYOCARDIAL INFARCTION [None]
  - SINUS TACHYCARDIA [None]
  - VENTRICULAR EXTRASYSTOLES [None]
